FAERS Safety Report 21844480 (Version 1)
Quarter: 2023Q1

REPORT INFORMATION
  Report Type: Report from Study
  Country: US (occurrence: US)
  Receive Date: 20230110
  Receipt Date: 20230110
  Transmission Date: 20230417
  Serious: Yes (Other)
  Sender: FDA-Public Use
  Company Number: US-TAKEDA-2023TUS002546

PATIENT
  Age: 48 Year
  Sex: Male

DRUGS (1)
  1. VON WILLEBRAND FACTOR HUMAN [Suspect]
     Active Substance: VON WILLEBRAND FACTOR HUMAN
     Indication: Product used for unknown indication
     Dosage: 5090 INTERNATIONAL UNIT
     Route: 042

REACTIONS (2)
  - Epistaxis [Unknown]
  - COVID-19 [Unknown]

NARRATIVE: CASE EVENT DATE: 20230104
